FAERS Safety Report 8966383 (Version 2)
Quarter: 2013Q1

REPORT INFORMATION
  Report Type: Spontaneous
  Country: IT (occurrence: IT)
  Receive Date: 20121216
  Receipt Date: 20130308
  Transmission Date: 20140127
  Serious: Yes (Hospitalization)
  Sender: FDA-Public Use
  Company Number: IT-BRISTOL-MYERS SQUIBB COMPANY-17200635

PATIENT
  Age: 48 Year
  Sex: Male

DRUGS (3)
  1. ERBITUX SOLN FOR INF [Suspect]
     Route: 042
     Dates: start: 20120704, end: 20120704
  2. FLUOROURACIL [Suspect]
     Route: 042
     Dates: start: 20120704, end: 20120704
  3. CISPLATINE [Suspect]
     Route: 042
     Dates: start: 20120704, end: 20120704

REACTIONS (1)
  - VIIth nerve paralysis [Not Recovered/Not Resolved]
